FAERS Safety Report 9326387 (Version 1)
Quarter: 2013Q2

REPORT INFORMATION
  Report Type: Other
  Country: DK (occurrence: DE)
  Receive Date: 20130604
  Receipt Date: 20130604
  Transmission Date: 20140414
  Serious: Yes (Death)
  Sender: FDA-Public Use
  Company Number: DE-FRI-1000045598

PATIENT
  Age: 40 Year
  Sex: Female
  Weight: 47 kg

DRUGS (8)
  1. CITALOPRAM [Suspect]
  2. LACOSAMIDE [Suspect]
  3. ACETAZOLAMIDE [Suspect]
  4. LEVETIRACETAM [Suspect]
  5. AGOMELATIN [Suspect]
  6. LAMOTRIGINE [Suspect]
  7. CLOBAZAM [Suspect]
  8. LORAZEPAM [Suspect]

REACTIONS (3)
  - Completed suicide [Fatal]
  - Poisoning [Fatal]
  - Cardiotoxicity [None]
